FAERS Safety Report 9833005 (Version 1)
Quarter: 2014Q1

REPORT INFORMATION
  Report Type: Spontaneous
  Country: DE (occurrence: DE)
  Receive Date: 20140121
  Receipt Date: 20140121
  Transmission Date: 20141002
  Serious: Yes (Other)
  Sender: FDA-Public Use
  Company Number: DE-CELGENEUS-062-21880-14011450

PATIENT
  Age: 72 Year
  Sex: Female

DRUGS (6)
  1. REVLIMID [Suspect]
     Indication: MYELODYSPLASTIC SYNDROME
     Route: 048
     Dates: start: 200706, end: 200807
  2. REVLIMID [Suspect]
     Route: 048
     Dates: start: 200809
  3. RAMIPRIL [Concomitant]
     Indication: PRODUCT USED FOR UNKNOWN INDICATION
     Dosage: 1/2 A DAY
     Route: 065
  4. L-THYROXIN [Concomitant]
     Indication: PRODUCT USED FOR UNKNOWN INDICATION
     Route: 065
  5. XIPAMID [Concomitant]
     Indication: PRODUCT USED FOR UNKNOWN INDICATION
     Dosage: 1/2 A DAY
     Route: 065
  6. MARCUMAR [Concomitant]
     Indication: CARDIOVERSION
     Route: 065

REACTIONS (6)
  - Lumbar spinal stenosis [Unknown]
  - Uterine prolapse [Unknown]
  - Sick sinus syndrome [Unknown]
  - Atrioventricular block second degree [Unknown]
  - Atrial fibrillation [Unknown]
  - Diarrhoea [Unknown]
